FAERS Safety Report 7922886-6 (Version None)
Quarter: 2011Q4

REPORT INFORMATION
  Report Type: 
  Country: None (occurrence: None)
  Receive Date: 20111117
  Receipt Date: 20110830
  Transmission Date: 20120403
  Serious: No
  Sender: FDA-Public Use
  Company Number: US-ALLERGAN-1111603US

PATIENT
  Age: 58 Year
  Sex: Female

DRUGS (1)
  1. LASTACAFT [Suspect]
     Indication: EYE PRURITUS
     Dosage: PRESCRIBED ONCE A DAY, WITH FIRST USE BID
     Route: 047
     Dates: start: 20110501

REACTIONS (2)
  - OCULAR HYPERAEMIA [None]
  - EYE IRRITATION [None]
